FAERS Safety Report 4627644-6 (Version None)
Quarter: 2005Q2

REPORT INFORMATION
  Report Type: 
  Country: None (occurrence: None)
  Receive Date: 20050401
  Receipt Date: 20050401
  Transmission Date: 20051028
  Serious: Yes (Hospitalization)
  Sender: FDA-Public Use
  Company Number: None

PATIENT
  Sex: Female
  Weight: 61 kg

DRUGS (4)
  1. OLANZAPINE [Suspect]
     Indication: AGITATION
     Dosage: 5MG QHS ORAL
     Route: 048
     Dates: start: 20050212, end: 20050220
  2. OLANZAPINE [Suspect]
     Indication: PSYCHOTIC DISORDER
     Dosage: 5MG QHS ORAL
     Route: 048
     Dates: start: 20050212, end: 20050220
  3. OLANZAPINE [Suspect]
     Indication: AGITATION
     Dosage: 5MG Q6H PRN ORAL
     Route: 048
     Dates: start: 20050212, end: 20050220
  4. OLANZAPINE [Suspect]
     Indication: PSYCHOTIC DISORDER
     Dosage: 5MG Q6H PRN ORAL
     Route: 048
     Dates: start: 20050212, end: 20050220

REACTIONS (5)
  - BLOOD POTASSIUM INCREASED [None]
  - DIABETES MELLITUS INADEQUATE CONTROL [None]
  - DIALYSIS [None]
  - HUNGER [None]
  - HYPERPHAGIA [None]
